FAERS Safety Report 25239481 (Version 1)
Quarter: 2025Q2

REPORT INFORMATION
  Report Type: Spontaneous
  Country: US (occurrence: None)
  Receive Date: 20250424
  Receipt Date: 20250424
  Transmission Date: 20250716
  Serious: No
  Sender: FDA-CTU
  Company Number: None

PATIENT
  Age: 75 Year
  Sex: Male

DRUGS (1)
  1. ALPRAZOLAM [Suspect]
     Active Substance: ALPRAZOLAM
     Indication: Anxiety

REACTIONS (5)
  - Confusional state [None]
  - Agitation [None]
  - Haematuria [None]
  - Tinnitus [None]
  - Anxiety [None]

NARRATIVE: CASE EVENT DATE: 20250401
